FAERS Safety Report 10390065 (Version 1)
Quarter: 2014Q1

REPORT INFORMATION
  Report Type: Spontaneous
  Country: US (occurrence: None)
  Receive Date: 20140306
  Receipt Date: 20140306
  Transmission Date: 20141002
  Serious: Yes (Hospitalization)
  Sender: FDA-Public Use
  Company Number: 163-21880-13012611

PATIENT
  Age: 70 Year
  Sex: Female
  Weight: 104.33 kg

DRUGS (10)
  1. REVLIMID [Suspect]
     Indication: PLASMA CELL MYELOMA
     Dosage: 21 IN 21 D
     Route: 048
     Dates: start: 20121122
  2. ARIMIDEX (ANASTROZOLE) [Concomitant]
  3. DEXAMETHASONE [Concomitant]
  4. FOSAMAX (ALENDRONATE SODIUM) [Concomitant]
  5. LIPITOR (ATORVASTATIN) [Concomitant]
  6. METFORMIN HCL (METFORMIN HYDROCHLORIDE) [Concomitant]
  7. METOPROLOL SUCCINATE (METOPROLOL SUCCINATE) [Concomitant]
  8. PROZAC (FLUOXETINE HYDROCHLORIDE) [Concomitant]
  9. VITAMIN D (ERGOCALCIFEROL) [Concomitant]
  10. WOMENS DAILY MULTIVITAMINS (MULTIVITAMINS) [Concomitant]

REACTIONS (1)
  - Influenza [None]
